FAERS Safety Report 6962680-6 (Version None)
Quarter: 2010Q3

REPORT INFORMATION
  Report Type: 
  Country: None (occurrence: None)
  Receive Date: 20100902
  Receipt Date: 20100826
  Transmission Date: 20110219
  Serious: Yes (Death, Hospitalization)
  Sender: FDA-Public Use
  Company Number: IN-BAXTER-2010BH019501

PATIENT
  Age: 73 Year
  Sex: Female

DRUGS (2)
  1. DIANEAL [Suspect]
     Indication: PERITONEAL DIALYSIS
     Route: 033
     Dates: start: 20100709, end: 20100804
  2. DIANEAL [Suspect]
     Route: 033
     Dates: start: 20100709, end: 20100804

REACTIONS (2)
  - CARDIAC ARREST [None]
  - PERITONITIS [None]
